FAERS Safety Report 20230206 (Version 4)
Quarter: 2022Q1

REPORT INFORMATION
  Report Type: Spontaneous
  Country: PT (occurrence: PT)
  Receive Date: 20211226
  Receipt Date: 20220322
  Transmission Date: 20220423
  Serious: Yes (Hospitalization, Other)
  Sender: FDA-Public Use
  Company Number: PT-MYLANLABS-2021M1089712

PATIENT
  Age: 54 Year
  Sex: Female

DRUGS (3)
  1. CARBIDOPA\LEVODOPA [Suspect]
     Active Substance: CARBIDOPA\LEVODOPA
     Indication: Parkinsonism
     Dosage: 3 DOSAGE FORM, ONCE A DAY(1 DOSAGE FORM, TID)
     Route: 065
  2. OLANZAPINE [Suspect]
     Active Substance: OLANZAPINE
     Indication: Product used for unknown indication
     Dosage: UNK
     Route: 065
  3. QUETIAPINE [Suspect]
     Active Substance: QUETIAPINE
     Indication: Product used for unknown indication
     Dosage: UNK
     Route: 065

REACTIONS (9)
  - Hallucination, auditory [Unknown]
  - Psychotic disorder [Unknown]
  - Insomnia [Unknown]
  - Aggression [Unknown]
  - Delusional disorder, erotomanic type [Unknown]
  - Decreased appetite [Unknown]
  - Psychomotor hyperactivity [Unknown]
  - Drug ineffective [Unknown]
  - Substance-induced psychotic disorder [Recovering/Resolving]
